FAERS Safety Report 19310024 (Version 1)
Quarter: 2021Q2

REPORT INFORMATION
  Report Type: Spontaneous
  Country: US (occurrence: US)
  Receive Date: 20210526
  Receipt Date: 20210526
  Transmission Date: 20210717
  Serious: No
  Sender: FDA-Public Use
  Company Number: US-MYLANLABS-2021M1029423

PATIENT
  Sex: Male
  Weight: 67 kg

DRUGS (2)
  1. WIXELA INHUB [Suspect]
     Active Substance: FLUTICASONE PROPIONATE\SALMETEROL XINAFOATE
     Indication: PRODUCT USED FOR UNKNOWN INDICATION
     Dosage: 500/50 MICROGRAM
     Route: 055
     Dates: start: 20210225
  2. WIXELA INHUB [Suspect]
     Active Substance: FLUTICASONE PROPIONATE\SALMETEROL XINAFOATE
     Dosage: 500/50 MICROGRAM
     Route: 055
     Dates: start: 20210508

REACTIONS (4)
  - Back pain [Unknown]
  - Device issue [Unknown]
  - Fatigue [Unknown]
  - Product quality issue [Unknown]
